FAERS Safety Report 9556452 (Version 1)
Quarter: 2013Q3

REPORT INFORMATION
  Report Type: Spontaneous
  Country: US (occurrence: US)
  Receive Date: 20130926
  Receipt Date: 20130926
  Transmission Date: 20140515
  Serious: Yes (Other)
  Sender: FDA-Public Use
  Company Number: US-SANOFI-AVENTIS-2013SA094749

PATIENT
  Age: 45 Year
  Sex: Female

DRUGS (2)
  1. ALLEGRA 24 HOUR [Suspect]
     Indication: SEASONAL ALLERGY
     Route: 048
     Dates: start: 1999
  2. ALLEGRA 24 HOUR [Suspect]
     Indication: SEASONAL ALLERGY
     Route: 048
     Dates: start: 1999

REACTIONS (1)
  - Thyroid cancer [Not Recovered/Not Resolved]
